FAERS Safety Report 9157653 (Version 2)
Quarter: 2013Q3

REPORT INFORMATION
  Report Type: Report from Study
  Country: RU (occurrence: RU)
  Receive Date: 20130312
  Receipt Date: 20130715
  Transmission Date: 20140515
  Serious: Yes (Hospitalization)
  Sender: FDA-Public Use
  Company Number: PHHO2013RU003571

PATIENT
  Age: 62 Year
  Sex: Male
  Weight: 64 kg

DRUGS (10)
  1. AMIODARONE [Suspect]
     Indication: VENTRICULAR TACHYCARDIA
     Dosage: 200 MG, QD
     Dates: start: 20120704, end: 20130222
  2. BISOPROLOL [Suspect]
     Indication: CORONARY ARTERY DISEASE
     Dosage: 5 MG, QD
     Route: 048
     Dates: start: 20120704, end: 20130222
  3. BLINDED ACZ885 [Suspect]
     Indication: CARDIOVASCULAR EVENT PROPHYLAXIS
     Dosage: CODE NOT BROKEN
     Route: 048
     Dates: start: 20121205, end: 20121225
  4. BLINDED NO TREATMENT RECEIVED [Suspect]
     Indication: CARDIOVASCULAR EVENT PROPHYLAXIS
     Dosage: CODE NOT BROKEN
     Route: 048
     Dates: start: 20121205, end: 20121225
  5. BLINDED PLACEBO [Suspect]
     Indication: CARDIOVASCULAR EVENT PROPHYLAXIS
     Dosage: CODE NOT BROKEN
     Route: 048
     Dates: start: 20121205, end: 20121225
  6. ASPIRIN [Concomitant]
     Indication: CORONARY ARTERY DISEASE
     Dosage: 100 MG, QD
     Route: 048
     Dates: start: 20120704
  7. CLOPIDOGREL [Concomitant]
     Indication: CORONARY ARTERY DISEASE
     Dosage: 75 MG, QD
     Route: 048
     Dates: start: 20120704
  8. ENALAPRIL [Concomitant]
     Indication: HYPERTENSION
     Dosage: 20 MG, BID
     Route: 048
     Dates: start: 20120704, end: 20130222
  9. AMLODIPIN [Concomitant]
     Indication: HYPERTENSION
     Dosage: 10 MG, QD
     Route: 048
     Dates: start: 20120704, end: 20130304
  10. LIPRIMAR [Concomitant]
     Indication: DYSLIPIDAEMIA
     Dosage: 20 MG, QD
     Route: 048
     Dates: start: 20120704, end: 20130222

REACTIONS (1)
  - Atrioventricular block second degree [Recovered/Resolved]
